FAERS Safety Report 9161340 (Version 2)
Quarter: 2013Q1

REPORT INFORMATION
  Report Type: Spontaneous
  Country: IL (occurrence: IL)
  Receive Date: 20130313
  Receipt Date: 20130326
  Transmission Date: 20140127
  Serious: Yes (Other)
  Sender: FDA-Public Use
  Company Number: IL-B.I. PHARMACEUTICALS,INC./RIDGEFIELD-2013-AP-00182RI

PATIENT
  Age: 63 Year
  Sex: Female

DRUGS (5)
  1. PRADAXA [Suspect]
     Indication: VASCULAR STENT INSERTION
     Dosage: 300 MG
     Route: 048
     Dates: start: 20130105, end: 20130301
  2. PRADAXA [Suspect]
     Indication: CEREBROVASCULAR ACCIDENT
  3. CARDILOC [Concomitant]
  4. OMEPRAZOLE [Concomitant]
  5. SIMVASTATIN [Concomitant]
     Dosage: 20 MG

REACTIONS (4)
  - Drug level increased [Recovered/Resolved]
  - Hyperkalaemia [Recovered/Resolved]
  - Face oedema [Recovered/Resolved]
  - Burning sensation [Recovered/Resolved]
